FAERS Safety Report 17480572 (Version 1)
Quarter: 2020Q1

REPORT INFORMATION
  Report Type: Spontaneous
  Country: IT (occurrence: IT)
  Receive Date: 20200301
  Receipt Date: 20200301
  Transmission Date: 20200409
  Serious: Yes (Other)
  Sender: FDA-Public Use
  Company Number: NVSC2020IT053126

PATIENT
  Age: 29 Year
  Sex: Female

DRUGS (2)
  1. AMOXICILLIN. [Suspect]
     Active Substance: AMOXICILLIN
     Indication: TOOTH ABSCESS
     Dosage: 1 DF TOTAL
     Route: 048
     Dates: start: 20191113, end: 20191113
  2. NAPROXEN. [Suspect]
     Active Substance: NAPROXEN
     Indication: TOOTH ABSCESS
     Dosage: 1 DF TOTAL
     Route: 048
     Dates: start: 20191113, end: 20191113

REACTIONS (3)
  - Rash [Recovering/Resolving]
  - Lip erythema [Recovering/Resolving]
  - Periorbital oedema [Recovering/Resolving]

NARRATIVE: CASE EVENT DATE: 20191113
